FAERS Safety Report 19262037 (Version 3)
Quarter: 2021Q2

REPORT INFORMATION
  Report Type: Spontaneous
  Country: NL (occurrence: NL)
  Receive Date: 20210516
  Receipt Date: 20210528
  Transmission Date: 20210717
  Serious: Yes (Life-Threatening)
  Sender: FDA-Public Use
  Company Number: NL-TEVA-2021-NL-1910461

PATIENT
  Age: 78 Year
  Sex: Female
  Weight: 63 kg

DRUGS (10)
  1. SIMVASTATINE TABLET FO 20MG / BRAND NAME NOT SPECIFIED [Concomitant]
     Active Substance: SIMVASTATIN
     Dosage: 20 MG, THERAPY START AND END DATE: ASKU
  2. HYDROCHLOORTHIAZIDE TABLET 12,5MG / BRAND NAME NOT SPECIFIED [Concomitant]
     Active Substance: HYDROCHLOROTHIAZIDE
     Dosage: 22.5 MILLIGRAM DAILY; THERAPY START AND END DATE: ASKU
  3. COLECALCIFEROL / BRAND NAME NOT SPECIFIED [Concomitant]
     Active Substance: CHOLECALCIFEROL
     Dosage: 50 MILLIGRAM DAILY; THERAPY START AND END DATE: ASKU
  4. LITHIUMCARBONAAT TABLET 300MG / BRAND NAME NOT SPECIFIED [Concomitant]
     Dosage: 300 MILLIGRAM DAILY;  THERAPY START AND END DATE: ASKU
  5. OMEGA 3 VISOLIE [Concomitant]
     Dosage: 2 DOSAGE FORMS DAILY;  THERAPY START AND END DATE: ASKU
  6. METOPROLOL TABLET MGA  25MG (SUCCINAAT) / BRAND NAME NOT SPECIFIED [Concomitant]
     Active Substance: METOPROLOL SUCCINATE
     Dosage: 1/2 X 25, THERAPY START AND END DATE: ASKU
  7. FRAXIPARINE (NADROPARIN CALCIUM) [Suspect]
     Active Substance: NADROPARIN CALCIUM
     Indication: HIP SURGERY
     Dosage: 1 DOSAGE FORMS DAILY; SYRINGE, 1 DF, THERAPY END DATE: ASKU, NADROPARINE INJVLST 9500IE/ML / FRAXIPA
     Route: 065
     Dates: start: 20210331
  8. MULTIVITAMINEN DRAGEE ? NON?CURRENT DRUG / DAVITAMON 10 MULTI DRAGEE ? [Concomitant]
     Dosage: 3 DOSAGE FORMS DAILY; 1 A DRAGEES, THERAPY START AND END DATE: ASKU
  9. GLUCOSAMIDE [Concomitant]
     Dosage: 1500 MILLIGRAM DAILY; THERAPY START AND END DATE: ASKU
  10. CLOPIDOGREL TABLET   75MG / BRAND NAME NOT SPECIFIED [Suspect]
     Active Substance: CLOPIDOGREL BISULFATE
     Indication: ANTICOAGULANT THERAPY
     Dosage: 1 DOSAGE FORMS DAILY; THERAPY END DATE: ASKU
     Route: 065
     Dates: start: 20210331

REACTIONS (1)
  - Transient ischaemic attack [Recovering/Resolving]

NARRATIVE: CASE EVENT DATE: 20210414
